FAERS Safety Report 8808399 (Version 4)
Quarter: 2012Q4

REPORT INFORMATION
  Report Type: 
  Country: US (occurrence: US)
  Receive Date: 20120926
  Receipt Date: 20121122
  Transmission Date: 20130627
  Serious: No
  Sender: FDA-Public Use
  Company Number: US-PFIZER INC-2012234795

PATIENT
  Age: 64 Year
  Sex: Male

DRUGS (14)
  1. INLYTA [Suspect]
     Indication: METASTATIC RENAL CELL CARCINOMA
     Dosage: 7 mg, 2x/day
     Route: 048
     Dates: start: 20120828, end: 20120905
  2. INLYTA [Suspect]
     Dosage: 5 mg, 2x/day
     Route: 048
     Dates: start: 20120917, end: 20121022
  3. INLYTA [Suspect]
     Dosage: 5 mg PO BID x 2 wks then 7 mg PO BID
     Route: 048
     Dates: start: 20120818, end: 20121022
  4. OXYCONTIN [Concomitant]
     Dosage: 15 mg, UNK
     Route: 048
  5. SYNTHROID [Concomitant]
     Dosage: 50 ug, UNK
     Route: 048
  6. LEVOXYL [Concomitant]
     Dosage: 50 ug, UNK
     Route: 048
  7. DYAZIDE [Concomitant]
     Indication: HYPERTENSION
     Dosage: 37.5-25 mg, daily
     Route: 048
  8. OXYIR [Concomitant]
     Dosage: 5 mg, UNK
     Route: 048
  9. COLCRYS [Concomitant]
     Dosage: 0.6 mg, UNK
     Route: 048
  10. ALLOPURINOL [Concomitant]
     Indication: GOUT
     Dosage: 300 mg, daily
  11. COLCHICINE [Concomitant]
     Dosage: 0.6 mg, daily
  12. REMERON [Concomitant]
     Dosage: 15mg,  qhs
  13. OXYCODONE [Concomitant]
     Indication: PAIN
     Dosage: 15 mg, 2x/day
  14. OXYCODONE [Concomitant]
     Dosage: 15mg q 12 hrs

REACTIONS (15)
  - Oral pain [Unknown]
  - Decreased appetite [Recovering/Resolving]
  - Weight decreased [Unknown]
  - Dysphonia [Not Recovered/Not Resolved]
  - Bone pain [Unknown]
  - Myalgia [Unknown]
  - Pain in extremity [Unknown]
  - Gout [Unknown]
  - Asthenia [Unknown]
  - Fatigue [Unknown]
  - Weight increased [Unknown]
  - Constipation [Unknown]
  - Rash [Recovered/Resolved]
  - Diarrhoea [Unknown]
  - Mucosal inflammation [Recovered/Resolved]
